FAERS Safety Report 13022634 (Version 1)
Quarter: 2016Q4

REPORT INFORMATION
  Report Type: Spontaneous
  Country: GB (occurrence: GB)
  Receive Date: 20161213
  Receipt Date: 20161213
  Transmission Date: 20170207
  Serious: Yes (Other)
  Sender: FDA-Public Use
  Company Number: GB-PFIZER INC-2016570237

PATIENT
  Age: 52 Year
  Sex: Male

DRUGS (2)
  1. SPIRONOLACTONE. [Suspect]
     Active Substance: SPIRONOLACTONE
     Indication: SECONDARY HYPERTENSION
     Dosage: 200 MG, UNK
     Route: 048
     Dates: start: 201504
  2. CITALOPRAM [Concomitant]
     Active Substance: CITALOPRAM HYDROBROMIDE
     Dosage: UNK

REACTIONS (2)
  - Gynaecomastia [Unknown]
  - Gender dysphoria [Not Recovered/Not Resolved]

NARRATIVE: CASE EVENT DATE: 201507
